FAERS Safety Report 7293146-4 (Version None)
Quarter: 2011Q1

REPORT INFORMATION
  Report Type: 
  Country: None (occurrence: None)
  Receive Date: 20110210
  Receipt Date: 20110210
  Transmission Date: 20110831
  Serious: Yes (Other)
  Sender: FDA-Public Use
  Company Number: None

PATIENT
  Age: 62 Year
  Sex: Female
  Weight: 49.8957 kg

DRUGS (1)
  1. AMPYRA [Suspect]
     Indication: MULTIPLE SCLEROSIS
     Dosage: 1 PILL TWICE DAILY PO
     Route: 048
     Dates: start: 20101204, end: 20110208

REACTIONS (4)
  - REBOUND EFFECT [None]
  - DRUG DOSE OMISSION [None]
  - FALL [None]
  - MULTIPLE SCLEROSIS RELAPSE [None]
